FAERS Safety Report 5364794-3 (Version None)
Quarter: 2007Q2

REPORT INFORMATION
  Report Type: 
  Country: None (occurrence: None)
  Receive Date: 20070621
  Receipt Date: 20070612
  Transmission Date: 20071010
  Serious: No
  Sender: FDA-Public Use
  Company Number: PHEH2007US02605

PATIENT
  Age: 26 Year
  Sex: Female
  Weight: 57.142 kg

DRUGS (2)
  1. ZELNORM [Suspect]
     Indication: IRRITABLE BOWEL SYNDROME
     Dosage: 6 MG, BID
     Route: 048
     Dates: start: 20031101, end: 20070401
  2. ORAL CONTRACEPTIVE NOS [Concomitant]

REACTIONS (2)
  - FLUSHING [None]
  - NEUROTRANSMITTER LEVEL ALTERED [None]
